FAERS Safety Report 11801366 (Version 1)
Quarter: 2015Q4

REPORT INFORMATION
  Report Type: Spontaneous
  Country: DE (occurrence: DE)
  Receive Date: 20151204
  Receipt Date: 20151204
  Transmission Date: 20160305
  Serious: Yes (Other)
  Sender: FDA-Public Use
  Company Number: DE-DRREDDYS-GER/GER/15/0054435

PATIENT
  Age: 30 Year
  Sex: Female
  Weight: 67 kg

DRUGS (7)
  1. EUTHYROX 100 [Concomitant]
     Indication: HYPOTHYROIDISM
     Route: 048
     Dates: start: 20141031, end: 20150726
  2. BUSCOPAN [Concomitant]
     Active Substance: BUTYLSCOPOLAMINE BROMIDE
     Indication: NEPHROLITHIASIS
     Route: 042
     Dates: start: 20150514, end: 20150515
  3. PERFALGAN [Concomitant]
     Active Substance: ACETAMINOPHEN
     Indication: NEPHROLITHIASIS
     Route: 042
     Dates: start: 20150514, end: 20150515
  4. VENLAFAXINE [Suspect]
     Active Substance: VENLAFAXINE HYDROCHLORIDE
     Indication: DEPRESSION
     Dosage: 75 MG/D INITIALLY 37.5MG/D, INCREASING DOSAGE TO 75MG/D
     Route: 048
     Dates: start: 20141031, end: 20150726
  5. MEPTID [Concomitant]
     Active Substance: MEPTAZINOL HYDROCHLORIDE
     Indication: NEPHROLITHIASIS
     Route: 042
     Dates: start: 20150514, end: 20150515
  6. FOLIO FORTE [Concomitant]
     Active Substance: FOLIC ACID\VITAMINS
     Indication: PROPHYLAXIS OF NEURAL TUBE DEFECT
     Route: 048
     Dates: start: 20141031, end: 20150726
  7. IBUPROFEN. [Concomitant]
     Active Substance: IBUPROFEN
     Indication: HEADACHE
     Route: 048

REACTIONS (3)
  - Premature rupture of membranes [Unknown]
  - Exposure during pregnancy [Unknown]
  - Meconium in amniotic fluid [Unknown]
